FAERS Safety Report 9821115 (Version 1)
Quarter: 2013Q4

REPORT INFORMATION
  Report Type: Spontaneous
  Country: US (occurrence: None)
  Receive Date: 20131028
  Receipt Date: 20131028
  Transmission Date: 20140711
  Serious: Yes (Hospitalization)
  Sender: FDA-Public Use
  Company Number: 2013US001399

PATIENT
  Age: 68 Year
  Sex: Male
  Weight: 86 kg

DRUGS (11)
  1. ICLUSIG [Suspect]
     Indication: ACUTE LYMPHOCYTIC LEUKAEMIA
     Route: 048
     Dates: start: 20130122
  2. SOTALOL (SOTALOL) [Concomitant]
  3. SOMA (CARISOPRODOL) [Concomitant]
  4. PROTONIX (PANTOPRAZOLE SODIUM SESQUIHYDRATE) [Concomitant]
  5. PREDNISONE (PREDNISONE) [Concomitant]
  6. OXYCONTIN (OXYCODONE HYDROCHLORIDE) [Concomitant]
  7. METOPROLOL (METOPROLOL) [Concomitant]
  8. MERCAPTOPURINE (MERCAPTOPURINE) [Concomitant]
  9. AMLODIPINE (AMLODIPINE) [Concomitant]
  10. AMIODARONE (AMIODARONE) [Concomitant]
  11. ACYCLOVIR (ACYCLOVIR) [Concomitant]

REACTIONS (1)
  - Atrial fibrillation [None]
